FAERS Safety Report 7599462-0 (Version None)
Quarter: 2011Q3

REPORT INFORMATION
  Report Type: 
  Country: None (occurrence: None)
  Receive Date: 20110711
  Receipt Date: 20110127
  Transmission Date: 20111222
  Serious: Yes (Hospitalization, Other)
  Sender: FDA-Public Use
  Company Number: US-BAYER-200939948NA

PATIENT
  Age: 49 Year
  Sex: Male
  Weight: 109 kg

DRUGS (33)
  1. ACETYLSALICYLIC ACID SRT [Concomitant]
     Dosage: 325 MG, QD
     Route: 048
  2. DARVOCET-N 50 [Concomitant]
     Dosage: UNK UNK, Q4HR PRN
     Route: 048
  3. PLAVIX [Concomitant]
     Route: 048
  4. ETOMIDATE [Concomitant]
     Dosage: 20 UNK, UNK
     Route: 042
     Dates: start: 20070410, end: 20070410
  5. ANECTINE [Concomitant]
     Dosage: 160 UNK, UNK
     Route: 042
     Dates: start: 20070410, end: 20070410
  6. PROTAMINE SULFATE [Concomitant]
     Dosage: 300 MG, UNK
     Route: 042
     Dates: start: 20070410, end: 20070410
  7. AMARIL VACCINE [Concomitant]
     Dosage: UNK
     Dates: start: 19920101
  8. RED BLOOD CELLS [Concomitant]
  9. PAVULON [Concomitant]
     Dosage: 10 UNK, UNK
     Route: 042
     Dates: start: 20070410, end: 20070410
  10. VERSED [Concomitant]
     Dosage: 10 MG, UNK
     Route: 042
     Dates: start: 20070410, end: 20070410
  11. FORANE [Concomitant]
     Dosage: 9.8 UNK, UNK
     Dates: start: 20070410, end: 20070410
  12. LIDOCAINE [Concomitant]
     Dosage: 100 UNK, UNK
     Route: 042
     Dates: start: 20070410, end: 20070410
  13. COREG [Concomitant]
     Dosage: 6.25 MG, BID
     Route: 048
  14. PREVACID [Concomitant]
     Dosage: 30 MG, QD
     Route: 048
  15. REQUIP [Concomitant]
     Dosage: 2 MG, HS
     Route: 048
  16. EPINEPHRINE [Concomitant]
     Dosage: 60 ML, UNK, 1MG/ML
     Route: 042
     Dates: start: 20070410, end: 20070410
  17. VASOPRESSIN [Concomitant]
     Dosage: 20 U, UNK
     Route: 042
     Dates: start: 20070410, end: 20070410
  18. GLYBURIDE [Concomitant]
     Dosage: 5 MG, QD
     Route: 048
     Dates: start: 20070101
  19. HEPARIN [Concomitant]
     Dosage: 2500 U, UNK
     Route: 042
     Dates: start: 20070410, end: 20070410
  20. TRASYLOL [Suspect]
     Dosage: 200 ML, UNK, LOADING DOSE
     Route: 042
     Dates: start: 20070410, end: 20070410
  21. HYDROCHLOROTHIAZIDE [Concomitant]
     Dosage: 25 MG, QAM
     Route: 048
  22. HECTOROL [Concomitant]
     Dosage: 2 MG, HS
     Route: 048
  23. COZAAR [Concomitant]
     Dosage: 50 MG, QD
     Route: 048
  24. MICARDIS [Concomitant]
     Dosage: 40 MG, QD
     Route: 048
  25. VANCOMYCIN [Concomitant]
     Dosage: 500 MG, UNK
     Route: 042
     Dates: start: 20070410, end: 20070410
  26. INSULIN [Concomitant]
     Dosage: 5 U, UNK
     Route: 042
     Dates: start: 20070410
  27. TRASYLOL [Suspect]
     Indication: CORONARY ARTERY BYPASS
     Dosage: 1 ML, UNK, TEST DOSE
     Route: 042
     Dates: start: 20070410, end: 20070410
  28. TYLENOL REGULAR [Concomitant]
     Dosage: UNK UNK, PRN
     Route: 048
  29. LORAZEPAM [Concomitant]
     Dosage: 1 MG, PRN
     Route: 048
  30. REGLAN [Concomitant]
     Dosage: 10 MG, TID
     Route: 048
  31. PHENERGAN HCL [Concomitant]
     Dosage: 25 MG, QD
     Route: 048
  32. NEURONTIN [Concomitant]
     Dosage: 2 MG, HS
     Route: 048
  33. POLYMYCIN B SULFATE [Concomitant]
     Dosage: 500000 U, UNK
     Route: 042
     Dates: start: 20070410, end: 20070410

REACTIONS (9)
  - RENAL INJURY [None]
  - FEAR [None]
  - ANHEDONIA [None]
  - ANXIETY [None]
  - PAIN [None]
  - INJURY [None]
  - UNEVALUABLE EVENT [None]
  - DEPRESSION [None]
  - RENAL FAILURE [None]
